FAERS Safety Report 9424416 (Version 1)
Quarter: 2013Q3

REPORT INFORMATION
  Report Type: Spontaneous
  Country: US (occurrence: None)
  Receive Date: 20130725
  Receipt Date: 20130725
  Transmission Date: 20140515
  Serious: Yes (Hospitalization, Other)
  Sender: FDA-Public Use
  Company Number: AUR-APL-2013-06009

PATIENT
  Age: 52 Year
  Sex: Female

DRUGS (4)
  1. FLUCONAZOLE [Suspect]
     Indication: PRODUCT USED FOR UNKNOWN INDICATION
  2. PHENYTOIN [Suspect]
     Indication: STATUS EPILEPTICUS
     Route: 042
  3. MEROPENEM (MEROPENEM) [Concomitant]
  4. VANCOMYCIN (VANCOMYCIN) [Concomitant]

REACTIONS (9)
  - Continuous haemodiafiltration [None]
  - Blood potassium decreased [None]
  - Blood albumin decreased [None]
  - Left ventricular dysfunction [None]
  - Tachycardia [None]
  - Electrocardiogram QT prolonged [None]
  - Electrocardiogram ST segment abnormal [None]
  - Toxicity to various agents [None]
  - Renal failure [None]
